FAERS Safety Report 8519354 (Version 2)
Quarter: 2012Q4

REPORT INFORMATION
  Report Type: 
  Country: BR (occurrence: BR)
  Receive Date: 20120418
  Receipt Date: 20121031
  Transmission Date: 20130627
  Serious: Yes (Hospitalization)
  Sender: FDA-Public Use
  Company Number: BR-ASTRAZENECA-2012SE23482

PATIENT
  Age: 77 Year
  Sex: Male
  Weight: 74 kg

DRUGS (7)
  1. CRESTOR [Suspect]
     Route: 048
     Dates: end: 201204
  2. CRESTOR [Suspect]
     Route: 048
  3. PRESSAT [Concomitant]
     Route: 048
  4. MICARDIS [Concomitant]
     Route: 048
  5. GALVUS MET [Concomitant]
     Indication: DIABETES MELLITUS
     Route: 048
  6. SOMALGIN CARDIO [Concomitant]
     Route: 048
  7. LABIRIN [Concomitant]
     Route: 048

REACTIONS (4)
  - Carotid artery occlusion [Recovered/Resolved]
  - Venous occlusion [Not Recovered/Not Resolved]
  - Hypoaesthesia [Unknown]
  - Muscle spasms [Unknown]
